FAERS Safety Report 5831705-3 (Version None)
Quarter: 2008Q3

REPORT INFORMATION
  Report Type: 
  Country: None (occurrence: None)
  Receive Date: 20080803
  Receipt Date: 20080718
  Transmission Date: 20090109
  Serious: Yes (Hospitalization, Disabling)
  Sender: FDA-Public Use
  Company Number: PHHO2007NL18894

PATIENT
  Sex: Male
  Weight: 90 kg

DRUGS (3)
  1. MYCOPHENOLIC ACID ERL+ [Suspect]
     Indication: RENAL TRANSPLANT
     Dates: start: 20061218, end: 20070701
  2. NEORAL [Suspect]
     Indication: RENAL TRANSPLANT
     Dosage: 75 MG, BID
     Route: 048
     Dates: start: 20061218, end: 20071006
  3. PREDNISOLON [Concomitant]
     Indication: RENAL TRANSPLANT
     Dosage: 10 MG/DAILY
     Route: 048
     Dates: start: 20061218

REACTIONS (3)
  - DRUG INEFFECTIVE [None]
  - KIDNEY TRANSPLANT REJECTION [None]
  - RENAL IMPAIRMENT [None]
